FAERS Safety Report 4624246-2 (Version None)
Quarter: 2005Q1

REPORT INFORMATION
  Report Type: 
  Country: None (occurrence: None)
  Receive Date: 20050330
  Receipt Date: 20050330
  Transmission Date: 20050727
  Serious: Yes (Other)
  Sender: FDA-Public Use
  Company Number: None

PATIENT
  Age: 41 Year
  Sex: Female

DRUGS (10)
  1. FENTANYL [Suspect]
     Indication: PAIN
     Dosage: 100 MCG EVERY 72 HRS TRANSDERMAL
     Route: 062
     Dates: start: 20050328, end: 20050329
  2. NEURONTIN [Concomitant]
  3. ZANAFLEX [Concomitant]
  4. MORPHINE [Concomitant]
  5. CELEXA [Concomitant]
  6. SINGULAIR [Concomitant]
  7. COMBIVENT [Concomitant]
  8. RHINOCORT [Concomitant]
  9. PROTONIX [Concomitant]
  10. CLARITIN [Concomitant]

REACTIONS (4)
  - DRUG WITHDRAWAL SYNDROME [None]
  - INADEQUATE ANALGESIA [None]
  - PAIN [None]
  - PHARMACEUTICAL PRODUCT COMPLAINT [None]
